FAERS Safety Report 4879940-5 (Version None)
Quarter: 2006Q1

REPORT INFORMATION
  Report Type: 
  Country: None (occurrence: None)
  Receive Date: 20060111
  Receipt Date: 20060101
  Transmission Date: 20060701
  Serious: Yes (Other)
  Sender: FDA-Public Use
  Company Number: 2006001591

PATIENT
  Sex: Male
  Weight: 97.5234 kg

DRUGS (1)
  1. SUDAFED 12 HOUR [Suspect]
     Indication: NASOPHARYNGITIS
     Dosage: 1-2 TABLETS EVERY 4 HOURS, ORAL
     Route: 048

REACTIONS (1)
  - CONVULSION [None]
